FAERS Safety Report 6544280-5 (Version None)
Quarter: 2010Q1

REPORT INFORMATION
  Report Type: 
  Country: None (occurrence: None)
  Receive Date: 20100115
  Receipt Date: 20091231
  Transmission Date: 20100710
  Serious: Yes (Life-Threatening, Other)
  Sender: FDA-Public Use
  Company Number: AUR-APL-2010-00005

PATIENT
  Age: 48 Year
  Sex: Female

DRUGS (2)
  1. CITALOPRAM [Suspect]
     Indication: MAJOR DEPRESSION
     Dosage: 40MG, DAILY, UNK
  2. FUROSEMIDE [Suspect]
     Indication: SYSTOLIC HYPERTENSION
     Dosage: 25MG, DAILY, UNK

REACTIONS (4)
  - BLOOD CHLORIDE DECREASED [None]
  - BLOOD POTASSIUM DECREASED [None]
  - ELECTROCARDIOGRAM ST-T SEGMENT DEPRESSION [None]
  - TORSADE DE POINTES [None]
